FAERS Safety Report 15226487 (Version 28)
Quarter: 2025Q4

REPORT INFORMATION
  Report Type: Report from Study
  Country: EU (occurrence: EU)
  Receive Date: 20180801
  Receipt Date: 20251223
  Transmission Date: 20260118
  Serious: Yes (Other)
  Sender: ROCHE
  Company Number: EU-ROCHE-2162727

PATIENT
  Age: 40 Year
  Sex: Female

DRUGS (12)
  1. OCREVUS [Suspect]
     Active Substance: OCRELIZUMAB
     Indication: Secondary progressive multiple sclerosis
     Route: 042
     Dates: start: 20180611
  2. OCREVUS [Suspect]
     Active Substance: OCRELIZUMAB
     Route: 042
  3. OCREVUS [Suspect]
     Active Substance: OCRELIZUMAB
     Route: 042
  4. OCREVUS [Suspect]
     Active Substance: OCRELIZUMAB
     Route: 042
  5. OCREVUS [Suspect]
     Active Substance: OCRELIZUMAB
     Dosage: FREQUENCY 1?FREQUENCY TIME 189 DAYS
     Route: 042
  6. OCREVUS [Suspect]
     Active Substance: OCRELIZUMAB
     Route: 042
     Dates: start: 20180611
  7. DALFAMPRIDINE [Concomitant]
     Active Substance: DALFAMPRIDINE
  8. CHOLECALCIFEROL [Concomitant]
     Active Substance: CHOLECALCIFEROL
  9. BACLOFEN [Concomitant]
     Active Substance: BACLOFEN
     Dosage: 10 MG - 0 - 25 MG
  10. CITALOPRAM [Concomitant]
     Active Substance: CITALOPRAM
  11. EBASTINE [Concomitant]
     Active Substance: EBASTINE
     Indication: Premedication
     Dates: start: 20191203, end: 20191205
  12. CORTISONE [Concomitant]
     Active Substance: CORTISONE
     Indication: Premedication

REACTIONS (12)
  - Intermenstrual bleeding [Recovered/Resolved]
  - Oral herpes [Recovered/Resolved]
  - Fatigue [Recovered/Resolved]
  - Bacterial infection [Unknown]
  - Off label use [Unknown]
  - Gait disturbance [Not Recovered/Not Resolved]
  - Fatigue [Recovered/Resolved]
  - Nasopharyngitis [Recovered/Resolved]
  - Disturbance in attention [Recovering/Resolving]
  - Fluid retention [Recovering/Resolving]
  - Arthralgia [Recovering/Resolving]
  - Joint swelling [Recovered/Resolved]

NARRATIVE: CASE EVENT DATE: 20180611
